FAERS Safety Report 10581213 (Version 3)
Quarter: 2014Q4

REPORT INFORMATION
  Report Type: Spontaneous
  Country: US (occurrence: US)
  Receive Date: 20141113
  Receipt Date: 20141118
  Transmission Date: 20150529
  Serious: Yes (Death)
  Sender: FDA-Public Use
  Company Number: US-ABBVIE-14K-163-1307240-00

PATIENT
  Age: 27 Year
  Sex: Male

DRUGS (1)
  1. HUMIRA [Suspect]
     Active Substance: ADALIMUMAB
     Indication: PSORIASIS
     Route: 065
     Dates: start: 201410

REACTIONS (1)
  - Road traffic accident [Fatal]

NARRATIVE: CASE EVENT DATE: 20141107
